FAERS Safety Report 21741423 (Version 1)
Quarter: 2022Q4

REPORT INFORMATION
  Report Type: Spontaneous
  Country: US (occurrence: US)
  Receive Date: 20221216
  Receipt Date: 20221216
  Transmission Date: 20230112
  Serious: No
  Sender: FDA-Public Use
  Company Number: US-ABBVIE-4195645

PATIENT
  Sex: Male

DRUGS (1)
  1. HUMIRA [Suspect]
     Active Substance: ADALIMUMAB
     Indication: Product used for unknown indication
     Dosage: STRENGTH:40MG
     Route: 058

REACTIONS (3)
  - Product administration error [Unknown]
  - Unevaluable event [Not Recovered/Not Resolved]
  - Product administered at inappropriate site [Unknown]
